FAERS Safety Report 8894721 (Version 2)
Quarter: 2013Q1

REPORT INFORMATION
  Report Type: Report from Study
  Country: SE (occurrence: SE)
  Receive Date: 20121108
  Receipt Date: 20130314
  Transmission Date: 20140127
  Serious: Yes (Hospitalization)
  Sender: FDA-Public Use
  Company Number: SE-PFIZER INC-2012272834

PATIENT
  Age: 75 Year
  Sex: Female
  Weight: 77 kg

DRUGS (10)
  1. GENOTROPIN [Suspect]
     Indication: GROWTH HORMONE DEFICIENCY
     Dosage: 0.2 MG, 1X/DAY, 7 INJECTIONS/WEEK
     Route: 058
     Dates: start: 20071101
  2. LEVOTHYROXINE [Concomitant]
     Indication: BLOOD THYROID STIMULATING HORMONE DECREASED
     Dosage: UNK
     Dates: start: 19950415
  3. LEVOTHYROXINE [Concomitant]
     Indication: PRIMARY HYPOTHYROIDISM
  4. CITODON [Concomitant]
     Indication: SCIATICA
     Dosage: UNK
     Dates: start: 19980120
  5. HYDROCORTISONE [Concomitant]
     Indication: BLOOD CORTICOTROPHIN DECREASED
     Dosage: UNK
     Dates: start: 20041013
  6. SIMVASTATIN [Concomitant]
     Indication: HYPERLIPIDAEMIA
     Dosage: UNK
     Dates: start: 20060807
  7. OMEPRAZOL [Concomitant]
     Indication: GASTRITIS
     Dosage: UNK
     Dates: start: 20061122
  8. ESTRADIOL [Concomitant]
     Indication: LUTEINISING HORMONE DEFICIENCY
     Dosage: UNK
     Dates: start: 20080512
  9. ESTRADIOL [Concomitant]
     Indication: FOLLICLE-STIMULATING HORMONE DEFICIENCY
  10. ESTRADIOL [Concomitant]
     Indication: HYPOGONADISM FEMALE

REACTIONS (1)
  - Epilepsy [Unknown]
